FAERS Safety Report 4766077-9 (Version None)
Quarter: 2005Q3

REPORT INFORMATION
  Report Type: 
  Country: None (occurrence: None)
  Receive Date: 20050906
  Receipt Date: 20050824
  Transmission Date: 20060218
  Serious: Yes (Hospitalization, Other)
  Sender: FDA-Public Use
  Company Number: 2005119755

PATIENT
  Age: 55 Year
  Sex: Female
  Weight: 42.7 kg

DRUGS (1)
  1. ZITHROMAX [Suspect]
     Indication: RESPIRATORY DISORDER
     Dosage: (500 MG,) INTRAVENOUS
     Route: 042
     Dates: start: 20050813, end: 20050813

REACTIONS (7)
  - BODY TEMPERATURE DECREASED [None]
  - CARDIO-RESPIRATORY ARREST [None]
  - DIZZINESS [None]
  - HAEMATEMESIS [None]
  - INFUSION RELATED REACTION [None]
  - PULMONARY HYPERTENSION [None]
  - PULSE ABSENT [None]
